FAERS Safety Report 4352424-9 (Version None)
Quarter: 2004Q2

REPORT INFORMATION
  Report Type: 
  Country: None (occurrence: None)
  Receive Date: 20040428
  Receipt Date: 20040419
  Transmission Date: 20050107
  Serious: Yes (Hospitalization)
  Sender: FDA-Public Use
  Company Number: 2004CG00137

PATIENT
  Age: 71 Year
  Sex: Male
  Weight: 90 kg

DRUGS (4)
  1. ATACAND [Suspect]
     Dates: start: 20031211, end: 20031224
  2. FENOFIBRATE [Suspect]
     Dosage: 1 DF DAILY PO
     Route: 048
     Dates: end: 20031214
  3. CORDARONE [Concomitant]
  4. PREVISCAN [Concomitant]

REACTIONS (10)
  - ATRIAL FIBRILLATION [None]
  - BUNDLE BRANCH BLOCK LEFT [None]
  - DRUG INTOLERANCE [None]
  - ECCHYMOSIS [None]
  - HYPERSENSITIVITY [None]
  - MALAISE [None]
  - PURPURA [None]
  - SKIN LESION [None]
  - VENTRICULAR FIBRILLATION [None]
  - VENTRICULAR TACHYCARDIA [None]
